FAERS Safety Report 14674858 (Version 2)
Quarter: 2018Q2

REPORT INFORMATION
  Report Type: Spontaneous
  Country: JP (occurrence: JP)
  Receive Date: 20180323
  Receipt Date: 20180418
  Transmission Date: 20180711
  Serious: Yes (Hospitalization, Other)
  Sender: FDA-Public Use
  Company Number: PHJP2018JP006598

PATIENT
  Age: 63 Year
  Sex: Male

DRUGS (1)
  1. NEORAL [Suspect]
     Active Substance: CYCLOSPORINE
     Indication: MYASTHENIA GRAVIS
     Dosage: 125 MG, QD
     Route: 048
     Dates: start: 20150407

REACTIONS (2)
  - Cerebral infarction [Recovered/Resolved]
  - Renal impairment [Not Recovered/Not Resolved]

NARRATIVE: CASE EVENT DATE: 20170215
